FAERS Safety Report 7888360-0 (Version None)
Quarter: 2011Q4

REPORT INFORMATION
  Report Type: 
  Country: None (occurrence: None)
  Receive Date: 20111103
  Receipt Date: 20111027
  Transmission Date: 20120403
  Serious: Yes (Hospitalization, Other)
  Sender: FDA-Public Use
  Company Number: PHEH2011US07883

PATIENT
  Age: 55 Year
  Sex: Female

DRUGS (1)
  1. RECLAST [Suspect]
     Route: 042

REACTIONS (8)
  - VARICOSE VEIN [None]
  - DYSPNOEA [None]
  - PAIN [None]
  - NAUSEA [None]
  - THROMBOSIS [None]
  - VEIN PAIN [None]
  - GAIT DISTURBANCE [None]
  - DEHYDRATION [None]
